FAERS Safety Report 9089651 (Version 1)
Quarter: 2013Q1

REPORT INFORMATION
  Report Type: Spontaneous
  Country: US (occurrence: US)
  Receive Date: 20130201
  Receipt Date: 20130201
  Transmission Date: 20140127
  Serious: No
  Sender: FDA-Public Use
  Company Number: US-GALDERMA-US-GDP-11412292

PATIENT
  Age: 13 Year
  Sex: Female
  Weight: 36 kg

DRUGS (4)
  1. EPIDUO [Suspect]
     Indication: ACNE
     Route: 061
     Dates: start: 20111017, end: 20111021
  2. CLINIQUE FACE WASH [Concomitant]
     Indication: THERAPEUTIC SKIN CARE TOPICAL
     Route: 061
  3. CLINQUE MOISTURIZER [Concomitant]
     Indication: THERAPEUTIC SKIN CARE TOPICAL
     Route: 061
  4. MARY KAY BENZOYL PEROXIDE [Concomitant]
     Indication: ACNE
     Route: 061

REACTIONS (2)
  - Acne [Recovered/Resolved]
  - Dermatitis [Recovered/Resolved]
